FAERS Safety Report 6524872-X (Version None)
Quarter: 2009Q4

REPORT INFORMATION
  Report Type: 
  Country: None (occurrence: None)
  Receive Date: 20091222
  Receipt Date: 20091208
  Transmission Date: 20100525
  Serious: Yes (Other)
  Sender: FDA-Public Use
  Company Number: 1000008923

PATIENT
  Age: 30 Year
  Sex: Female
  Weight: 54 kg

DRUGS (4)
  1. ESCITALOPRAM [Suspect]
     Indication: ANXIETY
     Dosage: 20 MG (10 MG, 2 IN 1 D)
     Dates: start: 20071001
  2. ESCITALOPRAM [Suspect]
     Indication: DEPRESSION
     Dosage: 20 MG (10 MG, 2 IN 1 D)
     Dates: start: 20071001
  3. CLONAZEPAM [Concomitant]
  4. VENTOLIN [Concomitant]

REACTIONS (5)
  - ASTHMA [None]
  - FALL [None]
  - HYPERSENSITIVITY [None]
  - TREMOR [None]
  - VISION BLURRED [None]
